FAERS Safety Report 6112634-7 (Version None)
Quarter: 2009Q1

REPORT INFORMATION
  Report Type: 
  Country: None (occurrence: None)
  Receive Date: 20090310
  Receipt Date: 20090223
  Transmission Date: 20090719
  Serious: Yes (Death, Life-Threatening, Hospitalization)
  Sender: FDA-Public Use
  Company Number: 2009000511

PATIENT
  Age: 66 Year
  Sex: Female

DRUGS (7)
  1. ERLOTINIB (ERLOTINIB) (TABLET) (ERLOTINIB) [Suspect]
     Indication: PANCREATIC CARCINOMA
     Dosage: (100 MG, QD), ORAL
     Route: 048
  2. GEMCITABINE [Suspect]
     Indication: PANCREATIC CARCINOMA
     Dosage: (1350 MG)
     Dates: start: 20081010, end: 20081114
  3. HYDROMORPHONE HCL [Concomitant]
  4. PANTOPRAZOL [Concomitant]
  5. DIPYRONE INJ [Concomitant]
  6. METOCLOPRAMIDE [Concomitant]
  7. NOVALGIN (METAMIZOLE SODIUM) [Concomitant]

REACTIONS (4)
  - ANAEMIA [None]
  - ANOREXIA [None]
  - LYMPHANGIOSIS CARCINOMATOSA [None]
  - PAIN [None]
